FAERS Safety Report 8233971-6 (Version None)
Quarter: 2012Q1

REPORT INFORMATION
  Report Type: 
  Country: None (occurrence: None)
  Receive Date: 20120326
  Receipt Date: 20120320
  Transmission Date: 20120608
  Serious: Yes (Life-Threatening)
  Sender: FDA-Public Use
  Company Number: GB-SANOFI-AVENTIS-2011SA057117

PATIENT
  Age: 64 Year
  Sex: Male
  Weight: 70 kg

DRUGS (15)
  1. BENDROFLUMETHIAZIDE [Concomitant]
  2. PREDNISOLONE [Concomitant]
  3. NAPROXEN [Concomitant]
  4. SIMVASTATIN [Concomitant]
  5. ALBUTEROL [Concomitant]
     Route: 055
  6. AMLODIPINE BESYLATE [Concomitant]
  7. TAMSULOSIN HCL [Concomitant]
  8. ASPIRIN [Concomitant]
  9. OMEPRAZOLE [Concomitant]
  10. PERINDOPRIL ERBUMINE [Concomitant]
  11. FLUTICASONE PROPIONATE/SALMETEROL [Concomitant]
  12. CITALOPRAM HYDROBROMIDE [Concomitant]
  13. LEFLUNOMIDE [Suspect]
     Indication: RHEUMATOID ARTHRITIS
     Route: 048
     Dates: start: 20110707
  14. PREGABALIN [Concomitant]
  15. TIOTROPIUM BROMIDE [Concomitant]

REACTIONS (1)
  - ISCHAEMIC STROKE [None]
